FAERS Safety Report 6509622-5 (Version None)
Quarter: 2009Q4

REPORT INFORMATION
  Report Type: 
  Country: None (occurrence: None)
  Receive Date: 20091221
  Receipt Date: 20091221
  Transmission Date: 20100525
  Serious: Yes (Hospitalization)
  Sender: FDA-Public Use
  Company Number: None

PATIENT
  Sex: Female
  Weight: 81.8 kg

DRUGS (2)
  1. CARBOPLATIN [Suspect]
     Dosage: 2055 MG
  2. PACLITAXEL [Suspect]
     Dosage: 1272 MG

REACTIONS (1)
  - ENTEROCOLITIS INFECTIOUS [None]
